FAERS Safety Report 23178923 (Version 2)
Quarter: 2023Q4

REPORT INFORMATION
  Report Type: Spontaneous
  Country: JP (occurrence: JP)
  Receive Date: 20231113
  Receipt Date: 20231121
  Transmission Date: 20240109
  Serious: Yes (Other)
  Sender: FDA-Public Use
  Company Number: JP-TEVA-2023-JP-002476J

PATIENT
  Age: 36 Year
  Sex: Male

DRUGS (1)
  1. LEVOCETIRIZINE HYDROCHLORIDE [Suspect]
     Active Substance: LEVOCETIRIZINE HYDROCHLORIDE
     Indication: Product used for unknown indication
     Route: 048
     Dates: start: 2020, end: 20231107

REACTIONS (5)
  - Dependence [Unknown]
  - Withdrawal syndrome [Unknown]
  - Limb discomfort [Unknown]
  - Tremor [Unknown]
  - Product dose omission in error [Unknown]
